FAERS Safety Report 8330435 (Version 3)
Quarter: 2013Q1

REPORT INFORMATION
  Report Type: Spontaneous
  Country: US (occurrence: US)
  Receive Date: 20120111
  Receipt Date: 20130122
  Transmission Date: 20140127
  Serious: Yes (Other)
  Sender: FDA-Public Use
  Company Number: PHEH2012US000919

PATIENT
  Age: 50 Year
  Sex: Female

DRUGS (4)
  1. GILENYA [Suspect]
     Indication: RELAPSING-REMITTING MULTIPLE SCLEROSIS
     Dosage: 0.5 MG, DAILY
     Route: 048
     Dates: start: 20111213
  2. IMITREX [Concomitant]
     Indication: MIGRAINE
     Dosage: 100 MG, UNK
     Dates: start: 20081010
  3. GABAPENTIN [Concomitant]
     Indication: PAIN
     Dosage: 300 MG, TID
     Route: 048
     Dates: start: 20091118
  4. TIZANIDINE [Concomitant]
     Indication: PAIN
     Dosage: 2 MG, UNK
     Dates: start: 20101016

REACTIONS (4)
  - Optic neuritis [Recovering/Resolving]
  - Eye pain [Recovering/Resolving]
  - Visual acuity reduced [Recovering/Resolving]
  - Vision blurred [Recovering/Resolving]
